FAERS Safety Report 6186471-1 (Version None)
Quarter: 2009Q2

REPORT INFORMATION
  Report Type: 
  Country: None (occurrence: None)
  Receive Date: 20090512
  Receipt Date: 20090504
  Transmission Date: 20091009
  Serious: Yes (Other)
  Sender: FDA-Public Use
  Company Number: US-RANBAXY-2009US-23649

PATIENT

DRUGS (4)
  1. MINOCYCLINE HYDROCHLORIDE [Suspect]
     Indication: ROSACEA
     Dosage: 50 MG, BID
     Route: 048
     Dates: start: 20090331, end: 20090413
  2. SYNTHROID [Concomitant]
     Indication: DRUG USE FOR UNKNOWN INDICATION
     Dosage: 100 UG, 1/WEEK
  3. FOSAMAX [Concomitant]
     Indication: DRUG USE FOR UNKNOWN INDICATION
     Dosage: UNK
     Route: 065
  4. CITRACAL [Concomitant]
     Indication: DRUG USE FOR UNKNOWN INDICATION
     Route: 065

REACTIONS (3)
  - DIPLOPIA [None]
  - HETEROPHORIA [None]
  - PHOTOPHOBIA [None]
